FAERS Safety Report 26179563 (Version 1)
Quarter: 2025Q4

REPORT INFORMATION
  Report Type: Spontaneous
  Country: US (occurrence: US)
  Receive Date: 20251219
  Receipt Date: 20251219
  Transmission Date: 20260117
  Serious: Yes (Death, Other)
  Sender: RANBAXY
  Company Number: US-SUN PHARMACEUTICAL INDUSTRIES INC-2025R1-542626

PATIENT
  Age: 49 Year
  Sex: Male

DRUGS (2)
  1. AMPHOTERICIN B [Suspect]
     Active Substance: AMPHOTERICIN B
     Indication: Meningitis cryptococcal
     Dosage: UNK
     Route: 065
  2. FLUCYTOSINE [Suspect]
     Active Substance: FLUCYTOSINE
     Indication: Meningitis cryptococcal
     Dosage: UNK
     Route: 065

REACTIONS (3)
  - Multiple organ dysfunction syndrome [Fatal]
  - Condition aggravated [Unknown]
  - Encephalopathy [Unknown]
